FAERS Safety Report 10233408 (Version 5)
Quarter: 2015Q3

REPORT INFORMATION
  Report Type: Spontaneous
  Country: US (occurrence: US)
  Receive Date: 20140612
  Receipt Date: 20150911
  Transmission Date: 20151125
  Serious: Yes (Hospitalization, Other)
  Sender: FDA-Public Use
  Company Number: US-DSJP-DSU-2014-00302-1

PATIENT

DRUGS (11)
  1. COUMADIN [Concomitant]
     Active Substance: WARFARIN SODIUM
     Indication: PRODUCT USED FOR UNKNOWN INDICATION
  2. BENICAR HCT [Suspect]
     Active Substance: HYDROCHLOROTHIAZIDE\OLMESARTAN MEDOXOMIL
     Dosage: 40/12.5 MG, QD
     Dates: start: 201011, end: 201012
  3. BENICAR [Suspect]
     Active Substance: OLMESARTAN MEDOXOMIL
     Dosage: 20 MG, QD
     Route: 048
     Dates: start: 20120809
  4. BENICAR HCT [Suspect]
     Active Substance: HYDROCHLOROTHIAZIDE\OLMESARTAN MEDOXOMIL
     Dosage: 80/25MG, QD
     Dates: start: 200811
  5. BENICAR [Suspect]
     Active Substance: OLMESARTAN MEDOXOMIL
     Dosage: 20 MG, QD
     Route: 048
     Dates: start: 20120612
  6. BENICAR HCT [Suspect]
     Active Substance: HYDROCHLOROTHIAZIDE\OLMESARTAN MEDOXOMIL
     Dosage: 40/25 MG, QD
     Dates: start: 2010, end: 2010
  7. BENICAR HCT [Suspect]
     Active Substance: HYDROCHLOROTHIAZIDE\OLMESARTAN MEDOXOMIL
     Indication: HYPERTENSION
     Dosage: 40/12.5 MG, QD
     Route: 048
     Dates: end: 2008
  8. BENICAR HCT [Suspect]
     Active Substance: HYDROCHLOROTHIAZIDE\OLMESARTAN MEDOXOMIL
     Dosage: 40/12.5 MG, QD
     Dates: end: 2010
  9. BENICAR [Suspect]
     Active Substance: OLMESARTAN MEDOXOMIL
     Indication: HYPERTENSION
     Dosage: 20 MG, QD
     Route: 048
     Dates: end: 201101
  10. BENICAR [Suspect]
     Active Substance: OLMESARTAN MEDOXOMIL
     Dosage: 20 MG, QD
     Route: 048
     Dates: start: 2011, end: 20130624
  11. BENICAR [Suspect]
     Active Substance: OLMESARTAN MEDOXOMIL
     Dosage: 20 MG, QD
     Route: 048
     Dates: start: 20120206

REACTIONS (41)
  - Compression fracture [Not Recovered/Not Resolved]
  - Metabolic acidosis [Unknown]
  - Overgrowth bacterial [Unknown]
  - Clostridium difficile infection [Unknown]
  - Enteritis [Not Recovered/Not Resolved]
  - Diabetes mellitus [Unknown]
  - Dizziness [Unknown]
  - Malabsorption [Not Recovered/Not Resolved]
  - Hiccups [Unknown]
  - Respiratory distress [Unknown]
  - Pneumoperitoneum [Unknown]
  - Urinary tract infection [Unknown]
  - Large intestinal ulcer [Unknown]
  - Pancreatitis [Recovered/Resolved]
  - Duodenitis [Unknown]
  - Deep vein thrombosis [Unknown]
  - Osteoporosis [Not Recovered/Not Resolved]
  - Peritoneal disorder [Unknown]
  - Cataract [Unknown]
  - Enterocolitis [Unknown]
  - Transaminases increased [Unknown]
  - Wheezing [Unknown]
  - Herpes simplex [Not Recovered/Not Resolved]
  - Diverticulitis [Unknown]
  - Haemorrhoids [Unknown]
  - Syncope [Unknown]
  - Sinus tachycardia [Unknown]
  - Cytomegalovirus colitis [Recovered/Resolved]
  - Blood pressure increased [Unknown]
  - Ileal ulcer [Unknown]
  - Autoimmune disorder [Unknown]
  - Platelet count increased [Unknown]
  - Abscess [Unknown]
  - Muscle spasms [Unknown]
  - Oesophageal candidiasis [Unknown]
  - Hyperhidrosis [Unknown]
  - Infection [Recovered/Resolved]
  - Ophthalmic herpes simplex [Not Recovered/Not Resolved]
  - Aspiration [Unknown]
  - Decubitus ulcer [Unknown]
  - Pneumatosis [Unknown]

NARRATIVE: CASE EVENT DATE: 2008
